FAERS Safety Report 5754612-3 (Version None)
Quarter: 2008Q2

REPORT INFORMATION
  Report Type: 
  Country: None (occurrence: None)
  Receive Date: 20080530
  Receipt Date: 20080430
  Transmission Date: 20081010
  Serious: No
  Sender: FDA-Public Use
  Company Number: US-BAYER-200821759NA

PATIENT
  Age: 44 Year
  Sex: Male
  Weight: 70 kg

DRUGS (1)
  1. MAGNEVIST [Suspect]
     Indication: NUCLEAR MAGNETIC RESONANCE IMAGING BRAIN
     Dosage: TOTAL DAILY DOSE: 15 ML  UNIT DOSE: 15 ML
     Route: 042
     Dates: start: 20080426, end: 20080426

REACTIONS (1)
  - NAUSEA [None]
